FAERS Safety Report 11416192 (Version 1)
Quarter: 2015Q3

REPORT INFORMATION
  Report Type: Spontaneous
  Country: US (occurrence: None)
  Receive Date: 20150824
  Receipt Date: 20150824
  Transmission Date: 20151125
  Serious: Yes (Other)
  Sender: FDA-Public Use
  Company Number: None

PATIENT
  Age: 43 Year
  Sex: Male
  Weight: 63.5 kg

DRUGS (3)
  1. NITROFURATOIN MONOHYDRATE MACRO [Suspect]
     Active Substance: NITROFURANTOIN\NITROFURANTOIN MONOHYDRATE
     Indication: URINARY TRACT INFECTION
     Route: 048
     Dates: start: 20150818, end: 20150820
  2. THYROXINE [Concomitant]
     Active Substance: LEVOTHYROXINE
  3. REGULAR WOMEN^S ONE  A DAY MULTIVITAMIN [Concomitant]

REACTIONS (4)
  - Headache [None]
  - Impaired driving ability [None]
  - Quality of life decreased [None]
  - Nausea [None]

NARRATIVE: CASE EVENT DATE: 20150818
